FAERS Safety Report 4397852-0 (Version None)
Quarter: 2004Q2

REPORT INFORMATION
  Report Type: 
  Country: None (occurrence: None)
  Receive Date: 20040621
  Receipt Date: 20040407
  Transmission Date: 20050107
  Serious: Yes (Death, Other)
  Sender: FDA-Public Use
  Company Number: USA-2004-0014419

PATIENT
  Age: 25 Year
  Sex: Male
  Weight: 81.6 kg

DRUGS (7)
  1. OXYCODONE HCL [Suspect]
     Dosage: UNK UNK, UNK, UNKNOWN
     Route: 065
  2. CODEINE (CODEINE) [Suspect]
     Dosage: UNK UNK, UNK, UNKNOWN
     Route: 065
  3. PROPOXYPHENE HCL [Suspect]
     Dosage: UNK UNK, UNK; UNKNOWN
     Route: 065
  4. DIAZEPAM [Suspect]
     Dosage: UNK UNK, UNK; UNKNOWN
     Route: 065
  5. PAROXETINE HCL [Suspect]
     Dosage: UNK UNK, UNK, UNKNOWN
     Route: 065
  6. CAFFEINE (CAFFEINE) [Suspect]
     Dosage: UNK UNK, UNK; UNKNOWN
     Route: 065
  7. ACETAMINOPHEN [Suspect]
     Dosage: UNK UNK, UNK; UNKNOWN
     Route: 065

REACTIONS (3)
  - ACCIDENTAL OVERDOSE [None]
  - DRUG ABUSER [None]
  - MULTIPLE DRUG OVERDOSE [None]
